FAERS Safety Report 6493919-1 (Version None)
Quarter: 2009Q4

REPORT INFORMATION
  Report Type: 
  Country: None (occurrence: None)
  Receive Date: 20091214
  Receipt Date: 20081124
  Transmission Date: 20100525
  Serious: Yes (Other)
  Sender: FDA-Public Use
  Company Number: US-BRISTOL-MYERS SQUIBB COMPANY-14418040

PATIENT
  Age: 31 Year
  Sex: Male
  Weight: 104 kg

DRUGS (5)
  1. ABILIFY [Suspect]
     Indication: BIPOLAR DISORDER
     Dates: start: 20040101, end: 20060101
  2. DEPAKOTE ER [Suspect]
     Dates: end: 20080101
  3. HALDOL [Suspect]
  4. SEROQUEL [Suspect]
  5. EFFEXOR [Suspect]

REACTIONS (1)
  - DYSKINESIA [None]
